FAERS Safety Report 6402066-6 (Version None)
Quarter: 2009Q4

REPORT INFORMATION
  Report Type: 
  Country: None (occurrence: None)
  Receive Date: 20091015
  Receipt Date: 20091007
  Transmission Date: 20100525
  Serious: Yes (Hospitalization)
  Sender: FDA-Public Use
  Company Number: CH-PFIZER INC-2009279355

PATIENT

DRUGS (14)
  1. NEURONTIN [Suspect]
     Indication: TRIGEMINAL NEURALGIA
     Dosage: 1200 MG, 3X/DAY
     Route: 048
  2. NORVASC [Suspect]
     Indication: ESSENTIAL HYPERTENSION
     Dosage: 5 MG, 1X/DAY
     Route: 048
  3. PHENHYDAN [Interacting]
     Indication: TRIGEMINAL NEURALGIA
     Dosage: UNK
     Route: 048
     Dates: start: 20090501, end: 20090909
  4. PHENHYDAN [Interacting]
     Dosage: 200 MG, 1X/DAY
     Route: 048
  5. OXYCONTIN [Suspect]
     Indication: TRIGEMINAL NEURALGIA
     Dosage: 30 MG, 2X/DAY
     Route: 048
     Dates: start: 20090801
  6. OXYNORM [Suspect]
     Indication: TRIGEMINAL NEURALGIA
     Dosage: 5 MG, 6X/DAY
     Route: 048
     Dates: start: 20090801
  7. ZOLPIDEM [Suspect]
     Indication: TRIGEMINAL NEURALGIA
     Dosage: 5 MG, 1X/DAY
     Route: 048
  8. RIVOTRIL [Suspect]
     Indication: TRIGEMINAL NEURALGIA
     Dosage: 0.5 MG, 1X/DAY
     Route: 048
     Dates: end: 20090909
  9. TEGRETOL [Suspect]
     Indication: TRIGEMINAL NEURALGIA
     Dosage: 200 MG, 2X/DAY
     Route: 048
  10. NEXIUM [Interacting]
     Dosage: 40 MG, 1X/DAY
     Route: 048
     Dates: start: 20090601
  11. ACETAMINOPHEN [Concomitant]
     Indication: TRIGEMINAL NEURALGIA
     Dosage: 1000 MG, 4X/DAY
     Route: 048
  12. LIDOCAINE [Concomitant]
     Indication: TRIGEMINAL NEURALGIA
     Dosage: UNK
     Route: 062
  13. DEXAMETHASONE [Concomitant]
     Indication: TRIGEMINAL NEURALGIA
     Dosage: 3 MG, 3X/DAY
     Route: 048
     Dates: start: 20090601
  14. TENORMIN [Concomitant]
     Indication: ESSENTIAL HYPERTENSION
     Dosage: 50 MG, 1X/DAY
     Route: 048

REACTIONS (2)
  - BALANCE DISORDER [None]
  - SOMNOLENCE [None]
